FAERS Safety Report 4842263-4 (Version None)
Quarter: 2005Q4

REPORT INFORMATION
  Report Type: 
  Country: None (occurrence: None)
  Receive Date: 20051125
  Receipt Date: 20051110
  Transmission Date: 20060501
  Serious: Yes (Other)
  Sender: FDA-Public Use
  Company Number: 2005155812

PATIENT
  Age: 75 Year
  Sex: Male

DRUGS (6)
  1. VIAGRA [Suspect]
     Indication: ILL-DEFINED DISORDER
     Dosage: (25 MG,),
     Dates: start: 20000101
  2. ARTIFICIAL TEARS (ARTIFICIAL TEARS) [Concomitant]
  3. CARDURA [Concomitant]
  4. ZYRTEC [Concomitant]
  5. ASPIRIN [Concomitant]
  6. VITAMINS (VITAMINS) [Concomitant]

REACTIONS (2)
  - DRUG INEFFECTIVE [None]
  - RETINAL VEIN OCCLUSION [None]
